FAERS Safety Report 24348507 (Version 1)
Quarter: 2024Q3

REPORT INFORMATION
  Report Type: Spontaneous
  Country: US (occurrence: US)
  Receive Date: 20240923
  Receipt Date: 20240923
  Transmission Date: 20241017
  Serious: No
  Sender: AUROBINDO
  Company Number: US-AUROBINDO-AUR-APL-2024-012888

PATIENT
  Age: 69 Year
  Sex: Female
  Weight: 58.9 kg

DRUGS (2)
  1. TAMOXIFEN CITRATE [Suspect]
     Active Substance: TAMOXIFEN CITRATE
     Indication: Neoplasm malignant
     Dosage: 20 MILLIGRAM, ONCE A DAY
     Route: 048
     Dates: start: 2018
  2. Cyto [Concomitant]
     Indication: Corneal disorder
     Dosage: UNK
     Route: 065

REACTIONS (2)
  - Hepatic enzyme increased [Unknown]
  - Thyroid disorder [Unknown]

NARRATIVE: CASE EVENT DATE: 20240217
